FAERS Safety Report 8930330 (Version 2)
Quarter: 2012Q4

REPORT INFORMATION
  Report Type: 
  Country: CL (occurrence: CL)
  Receive Date: 20121128
  Receipt Date: 20121130
  Transmission Date: 20130627
  Serious: Yes (Other)
  Sender: FDA-Public Use
  Company Number: CL-GLAXOSMITHKLINE-A1003117A

PATIENT
  Age: 64 Year
  Sex: Male

DRUGS (2)
  1. VOTRIENT [Suspect]
     Indication: RENAL CANCER
     Dosage: 400MG Twice per day
     Route: 048
  2. ANTIHYPERTENSIVE [Concomitant]
     Route: 048

REACTIONS (1)
  - Renal impairment [Not Recovered/Not Resolved]
